FAERS Safety Report 6690294-4 (Version None)
Quarter: 2010Q2

REPORT INFORMATION
  Report Type: 
  Country: None (occurrence: None)
  Receive Date: 20100421
  Receipt Date: 20100412
  Transmission Date: 20101027
  Serious: Yes (Hospitalization)
  Sender: FDA-Public Use
  Company Number: GB-AMGEN-QUU404768

PATIENT
  Age: 71 Year
  Sex: Female

DRUGS (5)
  1. NEULASTA [Suspect]
     Indication: CHEMOTHERAPY
     Route: 065
  2. CARBOPLATIN [Concomitant]
  3. ASPIRIN [Concomitant]
  4. ATORVASTATIN [Concomitant]
  5. UNSPECIFIED MEDICATION [Concomitant]

REACTIONS (10)
  - CELLULITIS [None]
  - ERYTHEMA [None]
  - HALLUCINATION [None]
  - HYPERSENSITIVITY [None]
  - HYPERTENSION [None]
  - HYPOVENTILATION [None]
  - NAUSEA [None]
  - PALPITATIONS [None]
  - RESTLESSNESS [None]
  - SWELLING FACE [None]
